FAERS Safety Report 20848355 (Version 1)
Quarter: 2022Q2

REPORT INFORMATION
  Report Type: Spontaneous
  Country: US (occurrence: None)
  Receive Date: 20220518
  Receipt Date: 20220518
  Transmission Date: 20220721
  Serious: No
  Sender: FDA-Public Use
  Company Number: None

PATIENT
  Sex: Male

DRUGS (1)
  1. EPCLUSA [Suspect]
     Active Substance: SOFOSBUVIR\VELPATASVIR
     Indication: Hepatitis C
     Dosage: 400/100MG DAILY BY MOUTH? ?
     Route: 048
     Dates: start: 20220325

REACTIONS (4)
  - Rash [None]
  - Therapy interrupted [None]
  - Pruritus [None]
  - Fatigue [None]
